FAERS Safety Report 17729048 (Version 1)
Quarter: 2020Q2

REPORT INFORMATION
  Report Type: Spontaneous
  Country: US (occurrence: US)
  Receive Date: 20200430
  Receipt Date: 20200430
  Transmission Date: 20200714
  Serious: Yes (Hospitalization)
  Sender: FDA-Public Use
  Company Number: None

PATIENT
  Age: 82 Year
  Sex: Female

DRUGS (8)
  1. REPATHA [Suspect]
     Active Substance: EVOLOCUMAB
     Indication: HYPERCHOLESTEROLAEMIA
     Dosage: ?          OTHER FREQUENCY:EVERY 14 DAYS;?
     Route: 058
     Dates: start: 20171214
  2. DIGOXIN. [Concomitant]
     Active Substance: DIGOXIN
  3. LATANOPROST. [Concomitant]
     Active Substance: LATANOPROST
  4. METOPROLOL TARTRATE. [Concomitant]
     Active Substance: METOPROLOL TARTRATE
  5. ELIQUIS [Concomitant]
     Active Substance: APIXABAN
  6. LASIX [Concomitant]
     Active Substance: FUROSEMIDE
  7. DILTIAZEM. [Concomitant]
     Active Substance: DILTIAZEM
  8. OMEGA-3 ACIDS [Concomitant]
     Active Substance: OMEGA-3 FATTY ACIDS

REACTIONS (1)
  - Palpitations [None]

NARRATIVE: CASE EVENT DATE: 20200425
